FAERS Safety Report 18106079 (Version 1)
Quarter: 2020Q3

REPORT INFORMATION
  Report Type: Spontaneous
  Country: US (occurrence: US)
  Receive Date: 20200804
  Receipt Date: 20200804
  Transmission Date: 20201103
  Serious: Yes (Hospitalization)
  Sender: FDA-Public Use
  Company Number: US-ABBVIE-20K-163-3504530-00

PATIENT
  Sex: Female

DRUGS (3)
  1. METHOTREXATE. [Concomitant]
     Active Substance: METHOTREXATE
     Indication: PRODUCT USED FOR UNKNOWN INDICATION
     Route: 050
  2. ENBREL [Concomitant]
     Active Substance: ETANERCEPT
     Indication: PRODUCT USED FOR UNKNOWN INDICATION
  3. HUMIRA [Suspect]
     Active Substance: ADALIMUMAB
     Indication: JUVENILE IDIOPATHIC ARTHRITIS
     Route: 058

REACTIONS (14)
  - Gait inability [Unknown]
  - Joint range of motion decreased [Unknown]
  - Pyrexia [Unknown]
  - Fatigue [Unknown]
  - Anxiety [Unknown]
  - Pain [Unknown]
  - Vomiting [Unknown]
  - Joint swelling [Unknown]
  - Injection site pain [Unknown]
  - Muscle rigidity [Unknown]
  - Therapeutic response shortened [Unknown]
  - Fatigue [Not Recovered/Not Resolved]
  - Ulcer [Unknown]
  - Uveitis [Unknown]
